FAERS Safety Report 7854581-6 (Version None)
Quarter: 2011Q4

REPORT INFORMATION
  Report Type: 
  Country: None (occurrence: None)
  Receive Date: 20111026
  Receipt Date: 20111019
  Transmission Date: 20120403
  Serious: Yes (Hospitalization, Other)
  Sender: FDA-Public Use
  Company Number: US-BAYER-2011-047512

PATIENT
  Age: 45 Year
  Sex: Male

DRUGS (6)
  1. UNKNOWN [Concomitant]
  2. CELEBREX [Concomitant]
  3. AVELOX [Suspect]
     Dosage: 400 MG, UNK
     Route: 048
     Dates: start: 20110123
  4. SYNTHROID [Concomitant]
  5. ATENOLOL [Concomitant]
  6. UNKNOWN [Concomitant]

REACTIONS (7)
  - ANAPHYLACTIC REACTION [None]
  - DYSPNOEA [None]
  - SYNCOPE [None]
  - RESPIRATORY DISTRESS [None]
  - RASH ERYTHEMATOUS [None]
  - BLOOD PRESSURE DECREASED [None]
  - PHARYNGEAL OEDEMA [None]
